FAERS Safety Report 13196528 (Version 1)
Quarter: 2017Q1

REPORT INFORMATION
  Report Type: Spontaneous
  Country: CN (occurrence: CN)
  Receive Date: 20170208
  Receipt Date: 20170208
  Transmission Date: 20170428
  Serious: Yes (Hospitalization)
  Sender: FDA-Public Use
  Company Number: CN-PFIZER INC-2017052121

PATIENT
  Age: 75 Year
  Sex: Male
  Weight: 65 kg

DRUGS (1)
  1. SOLU-MEDROL [Suspect]
     Active Substance: METHYLPREDNISOLONE SODIUM SUCCINATE
     Indication: LUNG INFECTION
     Dosage: 80 MG, 2X/DAY
     Route: 041
     Dates: start: 20161207, end: 20161220

REACTIONS (1)
  - Respiratory tract infection fungal [Recovering/Resolving]

NARRATIVE: CASE EVENT DATE: 20161220
